FAERS Safety Report 18159889 (Version 2)
Quarter: 2020Q3

REPORT INFORMATION
  Report Type: Spontaneous
  Country: US (occurrence: US)
  Receive Date: 20200818
  Receipt Date: 20200818
  Transmission Date: 20201103
  Serious: No
  Sender: FDA-Public Use
  Company Number: US-UNICHEM PHARMACEUTICALS (USA) INC-UCM202007-000771

PATIENT
  Sex: Female
  Weight: 99.79 kg

DRUGS (2)
  1. BISOPROLOL FUMARATE+HYDROCHLOROTHIAZIDE [Suspect]
     Active Substance: BISOPROLOL FUMARATE\HYDROCHLOROTHIAZIDE
     Indication: BLOOD PRESSURE ABNORMAL
     Dosage: 2.5/6.25 MG
  2. BISOPROLOL FUMARATE+HYDROCHLOROTHIAZIDE [Suspect]
     Active Substance: BISOPROLOL FUMARATE\HYDROCHLOROTHIAZIDE
     Dosage: 2.5/6.25 MG
     Dates: start: 20200701

REACTIONS (1)
  - Paraesthesia [Unknown]
